FAERS Safety Report 14538062 (Version 2)
Quarter: 2018Q1

REPORT INFORMATION
  Report Type: Spontaneous
  Country: US (occurrence: US)
  Receive Date: 20180216
  Receipt Date: 20180303
  Transmission Date: 20180509
  Serious: Yes (Other)
  Sender: FDA-Public Use
  Company Number: US-AMGEN-USASP2018019259

PATIENT
  Age: 62 Year
  Sex: Female
  Weight: 91.17 kg

DRUGS (1)
  1. PROLIA [Suspect]
     Active Substance: DENOSUMAB
     Indication: OSTEOPOROSIS POSTMENOPAUSAL
     Dosage: 60 MG, Q6MO
     Route: 058
     Dates: start: 2014, end: 20170615

REACTIONS (1)
  - Exostosis [Unknown]

NARRATIVE: CASE EVENT DATE: 20180126
